FAERS Safety Report 7082064-2 (Version None)
Quarter: 2010Q4

REPORT INFORMATION
  Report Type: 
  Country: None (occurrence: None)
  Receive Date: 20101103
  Receipt Date: 20101027
  Transmission Date: 20110411
  Serious: No
  Sender: FDA-Public Use
  Company Number: US-PFIZER INC-2010137052

PATIENT
  Sex: Male
  Weight: 74.8 kg

DRUGS (3)
  1. LYRICA [Suspect]
     Indication: NEUROPATHY PERIPHERAL
     Dosage: 50 MG, 2X/DAY
     Route: 048
     Dates: start: 20100401
  2. LYRICA [Suspect]
     Indication: LIMB OPERATION
  3. TIAZAC [Concomitant]
     Dosage: UNK

REACTIONS (2)
  - ERECTILE DYSFUNCTION [None]
  - SOMNOLENCE [None]
